FAERS Safety Report 22941683 (Version 2)
Quarter: 2023Q4

REPORT INFORMATION
  Report Type: Spontaneous
  Country: EG (occurrence: None)
  Receive Date: 20230914
  Receipt Date: 20231107
  Transmission Date: 20240109
  Serious: Yes (Other)
  Sender: FDA-Public Use
  Company Number: EG-ROCHE-3421257

PATIENT
  Age: 43 Year
  Sex: Female
  Weight: 89 kg

DRUGS (3)
  1. PHESGO [Suspect]
     Active Substance: HYALURONIDASE-ZZXF\PERTUZUMAB\TRASTUZUMAB
     Indication: Breast cancer
     Dosage: ON 14/AUG/2023 RECEIVED THE MOST RECENT DOSE PRIOR TO THE EVENT
     Route: 042
  2. CARBOPLATIN [Suspect]
     Active Substance: CARBOPLATIN
     Indication: Breast cancer
     Dosage: ON 14/AUG/2023 RECEIVED THE MOST RECENT DOSE PRIOR TO THE EVENT
     Route: 042
  3. PACLITAXEL [Suspect]
     Active Substance: PACLITAXEL
     Indication: Breast cancer
     Dosage: ON 14/AUG/2023 RECEIVED THE MOST RECENT DOSE PRIOR TO THE EVENT
     Route: 042

REACTIONS (1)
  - Pancytopenia [Recovering/Resolving]

NARRATIVE: CASE EVENT DATE: 20230822
